FAERS Safety Report 5068851-0 (Version None)
Quarter: 2006Q3

REPORT INFORMATION
  Report Type: 
  Country: None (occurrence: None)
  Receive Date: 20060802
  Receipt Date: 20060503
  Transmission Date: 20061208
  Serious: Yes (Death, Other)
  Sender: FDA-Public Use
  Company Number: US-BRISTOL-MYERS SQUIBB COMPANY-13366364

PATIENT
  Age: 74 Year
  Sex: Male

DRUGS (3)
  1. COUMADIN [Suspect]
     Indication: MYOCARDIAL INFARCTION
     Dates: start: 20050901
  2. ASPIRIN [Suspect]
     Indication: MYOCARDIAL INFARCTION
     Dates: start: 20050901
  3. PLAVIX [Suspect]
     Indication: MYOCARDIAL INFARCTION
     Dates: start: 20050901

REACTIONS (2)
  - GASTROINTESTINAL HAEMORRHAGE [None]
  - HAEMORRHAGIC STROKE [None]
